FAERS Safety Report 15756886 (Version 1)
Quarter: 2018Q4

REPORT INFORMATION
  Report Type: Spontaneous
  Country: US (occurrence: US)
  Receive Date: 20181223
  Receipt Date: 20181223
  Transmission Date: 20190205
  Serious: Yes (Other)
  Sender: FDA-Public Use
  Company Number: None

PATIENT
  Age: 56 Year
  Sex: Female
  Weight: 94.05 kg

DRUGS (11)
  1. IBUPROFEN. [Concomitant]
     Active Substance: IBUPROFEN
  2. LOSARTAN POTASSIUM. [Suspect]
     Active Substance: LOSARTAN POTASSIUM
     Indication: BLOOD PRESSURE MEASUREMENT
     Dosage: ?          QUANTITY:30 TABLET(S);?
     Route: 048
     Dates: start: 20181023, end: 20181116
  3. PROTONIX [Concomitant]
     Active Substance: PANTOPRAZOLE SODIUM
  4. OXYCODONE [Concomitant]
     Active Substance: OXYCODONE
  5. DRY EYE RELIEF [Concomitant]
     Active Substance: GLYCERIN\HYPROMELLOSE 2208 (100 MPA.S)\POLYETHYLENE GLYCOL 400
  6. EZETIMIBE. [Concomitant]
     Active Substance: EZETIMIBE
  7. ADVAIR HFA [Concomitant]
     Active Substance: FLUTICASONE PROPIONATE\SALMETEROL XINAFOATE
  8. OCARBAZEPINE [Concomitant]
  9. MELOXICAN [Concomitant]
     Active Substance: MELOXICAM
  10. ALBUTEROL. [Concomitant]
     Active Substance: ALBUTEROL
  11. LIPITOR [Concomitant]
     Active Substance: ATORVASTATIN CALCIUM

REACTIONS (3)
  - Recalled product administered [None]
  - Migraine [None]
  - Cerebrovascular accident [None]
